FAERS Safety Report 13523213 (Version 1)
Quarter: 2017Q2

REPORT INFORMATION
  Report Type: Report from Study
  Country: US (occurrence: US)
  Receive Date: 20170508
  Receipt Date: 20170508
  Transmission Date: 20170830
  Serious: Yes (Other)
  Sender: FDA-Public Use
  Company Number: US-AMGEN-USASL2017066716

PATIENT
  Age: 88 Year
  Sex: Female

DRUGS (1)
  1. REPATHA [Suspect]
     Active Substance: EVOLOCUMAB
     Indication: BLOOD CHOLESTEROL INCREASED
     Dosage: 140 MG, Q2WK
     Route: 065

REACTIONS (11)
  - Viral upper respiratory tract infection [Unknown]
  - Injection site bruising [Unknown]
  - Eye infection [Unknown]
  - Insomnia [Unknown]
  - Malaise [Unknown]
  - Influenza [Unknown]
  - Cardiac function test abnormal [Unknown]
  - Chills [Unknown]
  - Anxiety [Unknown]
  - Pruritus generalised [Unknown]
  - Weight decreased [Unknown]
